FAERS Safety Report 23099873 (Version 2)
Quarter: 2023Q4

REPORT INFORMATION
  Report Type: Spontaneous
  Country: US (occurrence: US)
  Receive Date: 20231024
  Receipt Date: 20231128
  Transmission Date: 20240110
  Serious: Yes (Hospitalization, Other)
  Sender: FDA-Public Use
  Company Number: US-HIKMA PHARMACEUTICALS USA INC.-US-H14001-23-66033

PATIENT
  Age: 13 Year
  Sex: Male
  Weight: 64.3 kg

DRUGS (12)
  1. MERCAPTOPURINE [Suspect]
     Active Substance: MERCAPTOPURINE
     Indication: Acute lymphocytic leukaemia
     Dosage: 75 MILLIGRAM/SQ. METER ON DAYS 1-84
     Route: 048
     Dates: start: 20230803
  2. METHOTREXATE [Suspect]
     Active Substance: METHOTREXATE
     Indication: Acute lymphocytic leukaemia
     Dosage: UNK
     Route: 048
  3. METHOTREXATE [Suspect]
     Active Substance: METHOTREXATE
     Indication: Acute lymphocytic leukaemia
     Dosage: 15 MILLIGRAM ON SPECIFIED DAYS
     Route: 037
     Dates: start: 20220711
  4. PREDNISONE [Suspect]
     Active Substance: PREDNISONE
     Indication: Acute lymphocytic leukaemia
     Dosage: 20 MILLIGRAM/SQ. METER, BID DAYS 1-5
     Route: 048
     Dates: start: 20230803
  5. RUXOLITINIB [Suspect]
     Active Substance: RUXOLITINIB
     Indication: Acute lymphocytic leukaemia
     Dosage: 50 MILLIGRAM/SQ. METER, BID
     Route: 048
     Dates: start: 20220711
  6. VINCRISTINE [Suspect]
     Active Substance: VINCRISTINE
     Indication: Acute lymphocytic leukaemia
     Dosage: 2 MILLIGRAM ON SPECIFIED DAYS
     Route: 042
     Dates: start: 20220725
  7. ACETAMINOPHEN [Concomitant]
     Active Substance: ACETAMINOPHEN
     Indication: Product used for unknown indication
     Dosage: UNK
     Route: 065
     Dates: start: 20221116
  8. ACTIGALL [Concomitant]
     Active Substance: URSODIOL
     Indication: Product used for unknown indication
     Dosage: UNK
     Route: 065
     Dates: start: 20230327
  9. CEFEPIME [Concomitant]
     Active Substance: CEFEPIME HYDROCHLORIDE
     Indication: Product used for unknown indication
     Dosage: UNK
     Route: 065
     Dates: start: 20230824
  10. KEFLEX [Concomitant]
     Active Substance: CEPHALEXIN
     Indication: Product used for unknown indication
     Dosage: UNK
     Route: 065
     Dates: start: 20230622, end: 20230629
  11. LEVOCARNITINE [Concomitant]
     Active Substance: LEVOCARNITINE
     Indication: Product used for unknown indication
     Dosage: UNK
     Route: 065
     Dates: start: 20230404
  12. METOCLOPRAMIDE [Concomitant]
     Active Substance: METOCLOPRAMIDE
     Indication: Product used for unknown indication
     Dosage: UNK
     Route: 065
     Dates: start: 20221025

REACTIONS (17)
  - Epistaxis [Not Recovered/Not Resolved]
  - Rhinovirus infection [Not Recovered/Not Resolved]
  - Enterovirus infection [Not Recovered/Not Resolved]
  - Pyrexia [Unknown]
  - Oropharyngeal pain [Unknown]
  - Headache [Unknown]
  - Dizziness [Unknown]
  - Basophil percentage increased [Unknown]
  - Eosinophil percentage increased [Unknown]
  - Haematocrit decreased [Unknown]
  - Haemoglobin decreased [Unknown]
  - Lymphocyte percentage decreased [Unknown]
  - Platelet count decreased [Unknown]
  - Neutrophil count increased [Unknown]
  - Red blood cell count decreased [Unknown]
  - White blood cell count decreased [Unknown]
  - Lymphocyte count increased [Unknown]

NARRATIVE: CASE EVENT DATE: 20230924
